FAERS Safety Report 8463291-6 (Version None)
Quarter: 2012Q2

REPORT INFORMATION
  Report Type: 
  Country: None (occurrence: None)
  Receive Date: 20120620
  Receipt Date: 20120614
  Transmission Date: 20120825
  Serious: Yes (Life-Threatening, Other)
  Sender: FDA-Public Use
  Company Number: ADR-2012-01124

PATIENT
  Sex: Male

DRUGS (2)
  1. BACLOFEN [Suspect]
     Indication: MUSCLE SPASTICITY
     Dosage: 799.7 MCG/DAY FLEX MODE
  2. BACLOFEN [Suspect]
     Indication: SPINAL CORD INJURY
     Dosage: 799.7 MCG/DAY FLEX MODE

REACTIONS (2)
  - DEPRESSED LEVEL OF CONSCIOUSNESS [None]
  - OVERDOSE [None]
